FAERS Safety Report 5112072-X (Version None)
Quarter: 2006Q3

REPORT INFORMATION
  Report Type: 
  Country: None (occurrence: None)
  Receive Date: 20060922
  Receipt Date: 20060912
  Transmission Date: 20061208
  Serious: Yes (Life-Threatening, Hospitalization)
  Sender: FDA-Public Use
  Company Number: JP-JNJFOC-20051103787

PATIENT
  Sex: Female
  Weight: 49 kg

DRUGS (20)
  1. REMICADE [Suspect]
     Route: 042
  2. REMICADE [Suspect]
     Indication: RHEUMATOID ARTHRITIS
     Route: 042
  3. RHEUMATREX [Suspect]
     Indication: RHEUMATOID ARTHRITIS
     Route: 048
  4. ISCOTIN [Suspect]
     Indication: DRUG USE FOR UNKNOWN INDICATION
     Route: 048
  5. JUVELA N [Concomitant]
  6. JUVELA N [Concomitant]
     Indication: RHEUMATOID ARTHRITIS
  7. MOVER [Concomitant]
     Route: 048
  8. MOVER [Concomitant]
     Indication: RHEUMATOID ARTHRITIS
     Route: 048
  9. CYTOTEC [Concomitant]
     Dosage: DOSE 200 RG
     Route: 048
  10. CYTOTEC [Concomitant]
     Indication: RHEUMATOID ARTHRITIS
     Dosage: DOSE 600 RG
     Route: 048
  11. GLAKAY [Concomitant]
     Route: 048
  12. GLAKAY [Concomitant]
     Indication: RHEUMATOID ARTHRITIS
     Route: 048
  13. URALYT [Concomitant]
     Route: 048
  14. URALYT [Concomitant]
     Route: 048
  15. PREDNISOLONE [Concomitant]
     Indication: RHEUMATOID ARTHRITIS
     Route: 048
  16. LOXONIN [Concomitant]
     Route: 048
  17. LOXONIN [Concomitant]
     Indication: RHEUMATOID ARTHRITIS
     Route: 048
  18. TOCOPHEROL CONCENTRATE CAP [Concomitant]
     Route: 048
  19. TOCOPHEROL CONCENTRATE CAP [Concomitant]
     Indication: RHEUMATOID ARTHRITIS
     Route: 048
  20. ALFAROL [Concomitant]
     Indication: RHEUMATOID ARTHRITIS
     Dosage: .25 RG  .25 RG
     Route: 048

REACTIONS (12)
  - BLOOD PRESSURE SYSTOLIC DECREASED [None]
  - BONE MARROW FAILURE [None]
  - DECREASED APPETITE [None]
  - DRUG INEFFECTIVE [None]
  - DRUG INTERACTION [None]
  - ESCHERICHIA INFECTION [None]
  - MALAISE [None]
  - PLATELET COUNT DECREASED [None]
  - PYELONEPHRITIS [None]
  - SEPSIS [None]
  - SEPTIC SHOCK [None]
  - WHITE BLOOD CELL COUNT DECREASED [None]
